FAERS Safety Report 5235415-5 (Version None)
Quarter: 2007Q1

REPORT INFORMATION
  Report Type: 
  Country: None (occurrence: None)
  Receive Date: 20070208
  Receipt Date: 20070208
  Transmission Date: 20070707
  Serious: Yes (Life-Threatening, Hospitalization)
  Sender: FDA-Public Use
  Company Number: None

PATIENT
  Age: 77 Year
  Sex: Female

DRUGS (8)
  1. BENZOCAINE 14% SPRAY [Suspect]
     Indication: ECHOCARDIOGRAM
     Dosage: ONCE
  2. LIDOCAINE [Suspect]
  3. HEPARIN [Concomitant]
  4. ASPIRIN [Concomitant]
  5. PANTOPRAZOLE SODIUM [Concomitant]
  6. INSULIN SS [Concomitant]
  7. SENNA [Concomitant]
  8. PROMETHAZINE [Concomitant]

REACTIONS (1)
  - METHAEMOGLOBINAEMIA [None]
